FAERS Safety Report 20340139 (Version 1)
Quarter: 2022Q1

REPORT INFORMATION
  Report Type: Spontaneous
  Country: CA (occurrence: None)
  Receive Date: 20220117
  Receipt Date: 20220117
  Transmission Date: 20220423
  Serious: Yes (Other)
  Sender: FDA-Public Use
  Company Number: CA-ROCHE-2998415

PATIENT
  Sex: Female

DRUGS (2)
  1. ACTEMRA [Suspect]
     Active Substance: TOCILIZUMAB
     Indication: Giant cell arteritis
     Route: 058
  2. PREDNISONE [Suspect]
     Active Substance: PREDNISONE
     Indication: Giant cell arteritis
     Route: 065

REACTIONS (12)
  - Depression [Unknown]
  - Feeling abnormal [Unknown]
  - Herpes zoster [Unknown]
  - Night sweats [Unknown]
  - Headache [Unknown]
  - Dizziness [Unknown]
  - Pain [Unknown]
  - Abdominal distension [Recovered/Resolved]
  - Blindness unilateral [Recovered/Resolved]
  - Spinal fracture [Unknown]
  - Weight decreased [Unknown]
  - Decreased appetite [Unknown]
